FAERS Safety Report 6814071-6 (Version None)
Quarter: 2010Q3

REPORT INFORMATION
  Report Type: 
  Country: None (occurrence: None)
  Receive Date: 20100702
  Receipt Date: 20100625
  Transmission Date: 20110219
  Serious: Yes (Life-Threatening, Hospitalization)
  Sender: FDA-Public Use
  Company Number: PHEH2010US02643

PATIENT
  Sex: Female
  Weight: 100 kg

DRUGS (18)
  1. TASIGNA [Suspect]
     Indication: ACUTE MYELOID LEUKAEMIA (IN REMISSION)
     Dosage: 400 MG, BID
     Route: 048
     Dates: start: 20100206, end: 20100210
  2. BUMEX [Concomitant]
     Dosage: 1 MG, QHS
  3. COMPAZINE [Concomitant]
     Dosage: SUPP DAILY AS NEEDED
     Route: 054
  4. COUMADIN [Concomitant]
     Dosage: 2 MG DAILY
  5. DARVOCET-N 100 [Concomitant]
     Dosage: AS NEEDED
  6. DIOVAN [Concomitant]
     Dosage: 80 MG, QD
  7. EVISTA [Concomitant]
  8. GLEEVEC [Concomitant]
     Dosage: 400 MG IN AM, 200 MG IN PM
  9. K-DUR [Concomitant]
     Dosage: 30 MEQ DAILY
  10. LEVOXYL [Concomitant]
     Dosage: 100 MCG DAILY
  11. LOPRESSOR [Concomitant]
     Dosage: 50 MG, BID
  12. MAG [Concomitant]
     Dosage: 2 TABS TWICE DAILY
  13. PROTONIX [Concomitant]
     Dosage: TWICE DAILY
  14. REGLAN [Concomitant]
     Dosage: 10 MG
  15. SENNA [Concomitant]
     Dosage: 2 TABLETS AS NEEDED
  16. SOMA [Concomitant]
     Dosage: AS NEEDED
  17. SYSTANE (PROPYLENE GLYCOL/MACROGOL) [Concomitant]
  18. ZOVIRAX [Concomitant]
     Dosage: 400 MG, BID

REACTIONS (5)
  - ATRIAL FIBRILLATION [None]
  - CHEST PAIN [None]
  - DYSPNOEA [None]
  - PYREXIA [None]
  - URINARY TRACT INFECTION [None]
